FAERS Safety Report 9757487 (Version 5)
Quarter: 2015Q2

REPORT INFORMATION
  Report Type: Report from Study
  Country: CA (occurrence: CA)
  Receive Date: 20131215
  Receipt Date: 20150420
  Transmission Date: 20150821
  Serious: Yes (Other)
  Sender: FDA-Public Use
  Company Number: CA-ROCHE-1225490

PATIENT
  Age: 52 Year
  Sex: Female
  Weight: 100 kg

DRUGS (12)
  1. METHOTREXATE [Concomitant]
     Active Substance: METHOTREXATE
     Route: 048
  2. ACTEMRA [Suspect]
     Active Substance: TOCILIZUMAB
     Dosage: 4MG/KG
     Route: 042
     Dates: start: 20130514
  3. PROGESTERONE. [Concomitant]
     Active Substance: PROGESTERONE
  4. ARTHROTEC [Concomitant]
     Active Substance: DICLOFENAC SODIUM\MISOPROSTOL
  5. NORVASC [Concomitant]
     Active Substance: AMLODIPINE BESYLATE
  6. ACTEMRA [Suspect]
     Active Substance: TOCILIZUMAB
     Route: 042
     Dates: start: 20130611
  7. ACTEMRA [Suspect]
     Active Substance: TOCILIZUMAB
     Indication: RHEUMATOID ARTHRITIS
     Dosage: 8 MG/KG
     Route: 042
     Dates: start: 20120813
  8. ACTEMRA [Suspect]
     Active Substance: TOCILIZUMAB
     Route: 042
     Dates: start: 20131210
  9. FOLIC ACID. [Concomitant]
     Active Substance: FOLIC ACID
  10. ACTEMRA [Suspect]
     Active Substance: TOCILIZUMAB
     Route: 042
     Dates: start: 20131112
  11. DIOVAN [Concomitant]
     Active Substance: VALSARTAN
  12. DOMPERIDONE [Concomitant]
     Active Substance: DOMPERIDONE

REACTIONS (3)
  - Urinary tract infection [Not Recovered/Not Resolved]
  - Upper respiratory tract infection [Not Recovered/Not Resolved]
  - Hepatic steatosis [Unknown]

NARRATIVE: CASE EVENT DATE: 20131205
